FAERS Safety Report 18584148 (Version 2)
Quarter: 2021Q1

REPORT INFORMATION
  Report Type: Spontaneous
  Country: IL (occurrence: IL)
  Receive Date: 20201207
  Receipt Date: 20210318
  Transmission Date: 20210419
  Serious: Yes (Hospitalization, Other)
  Sender: FDA-Public Use
  Company Number: IL-GLAXOSMITHKLINE-IL2020EME236224

PATIENT
  Age: 63 Year
  Sex: Female
  Weight: 65 kg

DRUGS (1)
  1. NUCALA [Suspect]
     Active Substance: MEPOLIZUMAB
     Indication: ASTHMA
     Dosage: UNK
     Dates: start: 2018

REACTIONS (18)
  - Cerebrovascular accident [Unknown]
  - Aneurysm [Unknown]
  - Ischaemic stroke [Unknown]
  - Central nervous system lesion [Unknown]
  - Dizziness [Unknown]
  - Infarction [Unknown]
  - Arrhythmia [Unknown]
  - Aphasia [Unknown]
  - Dysarthria [Unknown]
  - Loss of personal independence in daily activities [Unknown]
  - Depressed level of consciousness [Unknown]
  - Vertigo [Unknown]
  - Injury [Unknown]
  - Confusional state [Unknown]
  - Cognitive disorder [Unknown]
  - Bedridden [Unknown]
  - Hemiplegia [Unknown]
  - Hemianopia [Unknown]

NARRATIVE: CASE EVENT DATE: 20201127
